FAERS Safety Report 25660445 (Version 1)
Quarter: 2025Q3

REPORT INFORMATION
  Report Type: Spontaneous
  Country: PK (occurrence: PK)
  Receive Date: 20250808
  Receipt Date: 20250808
  Transmission Date: 20251020
  Serious: Yes (Other)
  Sender: CEDIPROF
  Company Number: PK-CEDIPROF, INC.-2025CED00011

PATIENT
  Age: 34 Year
  Sex: Male

DRUGS (1)
  1. AMPHETAMINE [Suspect]
     Active Substance: AMPHETAMINE
     Route: 065

REACTIONS (6)
  - Homicide [Unknown]
  - Suicide attempt [Unknown]
  - Substance-induced psychotic disorder [Unknown]
  - Drug abuse [Unknown]
  - Tachycardia [Unknown]
  - Hypertension [Unknown]
